FAERS Safety Report 8992047 (Version 2)
Quarter: 2013Q1

REPORT INFORMATION
  Report Type: Spontaneous
  Country: DE (occurrence: DE)
  Receive Date: 20121231
  Receipt Date: 20130121
  Transmission Date: 20140127
  Serious: Yes (Hospitalization)
  Sender: FDA-Public Use
  Company Number: PHHY2012DE121329

PATIENT
  Sex: Female
  Weight: 62 kg

DRUGS (6)
  1. EXELON PATCH [Suspect]
     Indication: DEMENTIA
     Dosage: 4.6 MG, DAILY
     Route: 062
     Dates: start: 201210, end: 20121030
  2. EXELON PATCH [Suspect]
     Dosage: 4.6 MG, DAILY
     Route: 062
     Dates: start: 20121223, end: 20121227
  3. ERGENYL [Concomitant]
     Indication: EPILEPSY
     Dosage: 500 MG, BID
     Route: 048
  4. ISOPTIN KHK [Concomitant]
     Dosage: 120 MG, QD
     Route: 048
  5. DELIX [Concomitant]
     Dosage: 2.5 MG, BID
     Route: 048
  6. ASS PROTECTID [Concomitant]
     Dosage: 100 MG, DAILY
     Route: 048

REACTIONS (4)
  - Herpes simplex meningoencephalitis [Not Recovered/Not Resolved]
  - Application site irritation [Not Recovered/Not Resolved]
  - Application site pruritus [Not Recovered/Not Resolved]
  - Application site erythema [Recovered/Resolved]
